FAERS Safety Report 4343347-X (Version None)
Quarter: 2004Q1

REPORT INFORMATION
  Report Type: 
  Country: None (occurrence: None)
  Receive Date: 20040325
  Receipt Date: 20040220
  Transmission Date: 20041129
  Serious: No
  Sender: FDA-Public Use
  Company Number: USA040259928

PATIENT
  Age: 71 Year
  Sex: Female
  Weight: 73 kg

DRUGS (1)
  1. FORTEO [Suspect]
     Dates: start: 20030401

REACTIONS (1)
  - WEIGHT INCREASED [None]
